FAERS Safety Report 10486559 (Version 2)
Quarter: 2014Q4

REPORT INFORMATION
  Report Type: Spontaneous
  Country: US (occurrence: US)
  Receive Date: 20141001
  Receipt Date: 20141001
  Transmission Date: 20150528
  Serious: No
  Sender: FDA-Public Use
  Company Number: US-KOWA-2013S1001945

PATIENT
  Age: 68 Year
  Sex: Female

DRUGS (8)
  1. PLAVIX [Concomitant]
     Active Substance: CLOPIDOGREL BISULFATE
     Dates: start: 200403
  2. DIOVAN [Concomitant]
     Active Substance: VALSARTAN
  3. VITAMIN B [Concomitant]
     Active Substance: VITAMIN B
  4. METOPROLOL [Concomitant]
     Active Substance: METOPROLOL
     Dates: start: 200403
  5. OMEGA 3 [Concomitant]
     Active Substance: OMEGA-3 FATTY ACIDS
  6. VITAMIN C [Concomitant]
     Active Substance: ASCORBIC ACID
  7. LIVALO [Suspect]
     Active Substance: PITAVASTATIN CALCIUM
     Indication: BLOOD CHOLESTEROL INCREASED
     Route: 048
     Dates: start: 201306
  8. DIOVAN [Concomitant]
     Active Substance: VALSARTAN
     Dates: start: 2010

REACTIONS (7)
  - Back pain [Recovered/Resolved]
  - Breast discomfort [Recovered/Resolved]
  - Paraesthesia [Recovered/Resolved]
  - Abdominal distension [Recovered/Resolved]
  - Sensory loss [Recovered/Resolved]
  - Flank pain [Recovered/Resolved]
  - Nausea [Recovered/Resolved]

NARRATIVE: CASE EVENT DATE: 201306
